FAERS Safety Report 10268611 (Version 3)
Quarter: 2014Q3

REPORT INFORMATION
  Report Type: Spontaneous
  Country: US (occurrence: US)
  Receive Date: 20140630
  Receipt Date: 20140822
  Transmission Date: 20150326
  Serious: No
  Sender: FDA-Public Use
  Company Number: US-PFIZER INC-2014175708

PATIENT
  Age: 72 Year
  Sex: Male
  Weight: 97.51 kg

DRUGS (4)
  1. LYRICA [Suspect]
     Active Substance: PREGABALIN
     Dosage: 100 MG, EVERY SIX HOURS
  2. LYRICA [Suspect]
     Active Substance: PREGABALIN
     Dosage: UNK, EVERY SIX HOURS
  3. LYRICA [Suspect]
     Active Substance: PREGABALIN
     Dosage: 100 MG,  EVERY SIX HOURS
  4. LYRICA [Suspect]
     Active Substance: PREGABALIN
     Indication: PHANTOM PAIN
     Dosage: 50 MG, EVERY SIX HOURS
     Dates: start: 20140519, end: 20140525

REACTIONS (5)
  - Somnolence [Unknown]
  - Feeling of relaxation [Unknown]
  - Weight increased [Unknown]
  - Peripheral swelling [Unknown]
  - Therapeutic response changed [Unknown]

NARRATIVE: CASE EVENT DATE: 201405
